FAERS Safety Report 6381696-4 (Version None)
Quarter: 2009Q3

REPORT INFORMATION
  Report Type: 
  Country: None (occurrence: None)
  Receive Date: 20090930
  Receipt Date: 20090917
  Transmission Date: 20100115
  Serious: Yes (Hospitalization)
  Sender: FDA-Public Use
  Company Number: PHEH2009US06474

PATIENT
  Sex: Female
  Weight: 61.678 kg

DRUGS (2)
  1. EXJADE [Suspect]
     Indication: MYELODYSPLASTIC SYNDROME
     Dosage: 1000 MG, QD
     Route: 048
     Dates: start: 20090520
  2. EXJADE [Suspect]
     Indication: IRON OVERLOAD

REACTIONS (7)
  - FALL [None]
  - NAUSEA [None]
  - PAIN [None]
  - SERUM FERRITIN INCREASED [None]
  - SURGERY [None]
  - UPPER LIMB FRACTURE [None]
  - VOMITING [None]
